FAERS Safety Report 21270547 (Version 1)
Quarter: 2022Q3

REPORT INFORMATION
  Report Type: Spontaneous
  Country: US (occurrence: None)
  Receive Date: 20220829
  Receipt Date: 20220829
  Transmission Date: 20221027
  Serious: Yes (Hospitalization)
  Sender: FDA-Public Use
  Company Number: None

PATIENT
  Age: 29 Year
  Sex: Female

DRUGS (12)
  1. MAKENA [Suspect]
     Active Substance: HYDROXYPROGESTERONE CAPROATE
     Indication: Pregnancy
     Dosage: OTHER QUANTITY : 275MG1.1ML;?FREQUENCY : WEEKLY;?
     Route: 058
     Dates: start: 20220624
  2. ESTRADIOL DIS [Concomitant]
  3. ESTRADIOL [Concomitant]
     Active Substance: ESTRADIOL
  4. HYDROXYCHLOR TAB [Concomitant]
  5. IBUPROFEN TAB [Concomitant]
  6. LEVOTHYROXIN TAB [Concomitant]
  7. MEDROXYPR AC TAB [Concomitant]
  8. METFORMIN TAB [Concomitant]
  9. NORETHIN ACE TAB [Concomitant]
  10. PREDNISONE [Concomitant]
     Active Substance: PREDNISONE
  11. PRENATAL TAB COMPLETE [Concomitant]
  12. PROGESTERONE INJ [Concomitant]

REACTIONS (2)
  - Hospitalisation [None]
  - Therapy interrupted [None]

NARRATIVE: CASE EVENT DATE: 20220829
